FAERS Safety Report 8417007 (Version 3)
Quarter: 2018Q1

REPORT INFORMATION
  Report Type: Report from Study
  Country: US (occurrence: US)
  Receive Date: 20120220
  Receipt Date: 20180102
  Transmission Date: 20180509
  Serious: Yes (Death, Hospitalization, Other)
  Sender: FDA-Public Use
  Company Number: US-BRISTOL-MYERS SQUIBB COMPANY-16306854

PATIENT
  Age: 67 Year
  Sex: Male
  Weight: 61 kg

DRUGS (3)
  1. PACLITAXEL. [Suspect]
     Active Substance: PACLITAXEL
     Indication: OESOPHAGEAL ADENOCARCINOMA
     Dosage: LAST DOSE ON 12DEC2011(177MG)  263MG:11JAN2012
     Route: 065
     Dates: start: 20111205
  2. CISPLATIN. [Suspect]
     Active Substance: CISPLATIN
     Indication: OESOPHAGEAL ADENOCARCINOMA
     Dosage: LAST DOSE ON 12DEC2011
     Route: 065
     Dates: start: 20111205
  3. CETUXIMAB. [Suspect]
     Active Substance: CETUXIMAB
     Indication: OESOPHAGEAL ADENOCARCINOMA
     Dosage: LAST DOSE ON 12DEC2011(1163MG),11JAN2012
     Route: 065
     Dates: start: 20111205

REACTIONS (7)
  - Oesophageal haemorrhage [Fatal]
  - Dermatitis acneiform [Recovered/Resolved with Sequelae]
  - Oesophageal perforation [Recovered/Resolved with Sequelae]
  - Dysphagia [Recovered/Resolved with Sequelae]
  - Atrial fibrillation [Recovered/Resolved]
  - Pneumonia [Recovered/Resolved with Sequelae]
  - Dyspnoea [Recovered/Resolved with Sequelae]

NARRATIVE: CASE EVENT DATE: 20111216
